FAERS Safety Report 8067858-9 (Version None)
Quarter: 2012Q1

REPORT INFORMATION
  Report Type: 
  Country: None (occurrence: None)
  Receive Date: 20120124
  Receipt Date: 20120118
  Transmission Date: 20120608
  Serious: Yes (Other)
  Sender: FDA-Public Use
  Company Number: US-ABBOTT-12P-163-0889079-00

PATIENT
  Sex: Female

DRUGS (11)
  1. MULTI-VITAMINS [Concomitant]
     Indication: PRODUCT USED FOR UNKNOWN INDICATION
  2. CALTRATE 600 +D [Concomitant]
     Indication: PRODUCT USED FOR UNKNOWN INDICATION
  3. ASPIRIN [Concomitant]
     Indication: PRODUCT USED FOR UNKNOWN INDICATION
     Dosage: DAILY
  4. VITAMIN D [Concomitant]
     Indication: PRODUCT USED FOR UNKNOWN INDICATION
  5. PREDNISONE [Concomitant]
     Indication: RHEUMATOID ARTHRITIS
     Dosage: DAILY
  6. FOLIC ACID [Concomitant]
     Indication: PRODUCT USED FOR UNKNOWN INDICATION
     Dosage: DAILY
  7. METHOTREXATE [Concomitant]
     Indication: RHEUMATOID ARTHRITIS
  8. HUMIRA [Suspect]
     Indication: RHEUMATOID ARTHRITIS
     Dates: start: 20050101, end: 20060901
  9. HUMIRA [Suspect]
     Dates: start: 20060901
  10. TOPROL-XL [Concomitant]
     Indication: HYPERTENSION
     Dosage: DAILY
  11. OMEGA 3 FATTY ACID [Concomitant]
     Indication: PRODUCT USED FOR UNKNOWN INDICATION
     Dosage: ONE MONDAY, TUESDAY, WEDNESDAY ONLY

REACTIONS (10)
  - HIATUS HERNIA [None]
  - HYPERSENSITIVITY [None]
  - BIOPSY BREAST NORMAL [None]
  - OEDEMA [None]
  - LIP BLISTER [None]
  - DRUG INEFFECTIVE [None]
  - CHOLELITHIASIS [None]
  - NASAL OEDEMA [None]
  - LIP SWELLING [None]
  - CATARACT [None]
